FAERS Safety Report 24692421 (Version 3)
Quarter: 2025Q3

REPORT INFORMATION
  Report Type: Report from Study
  Country: US (occurrence: US)
  Receive Date: 20241203
  Receipt Date: 20250809
  Transmission Date: 20251020
  Serious: Yes (Other)
  Sender: ALEXION PHARMACEUTICALS
  Company Number: US-AstraZeneca-CH-00756191A

PATIENT

DRUGS (1)
  1. ACALABRUTINIB [Suspect]
     Active Substance: ACALABRUTINIB

REACTIONS (6)
  - Bladder neoplasm [Unknown]
  - Atrial fibrillation [Unknown]
  - Vomiting [Unknown]
  - Diarrhoea [Unknown]
  - Feeling abnormal [Unknown]
  - Product dose omission issue [Unknown]
